FAERS Safety Report 8889893 (Version 2)
Quarter: 2012Q4

REPORT INFORMATION
  Report Type: 
  Country: US (occurrence: US)
  Receive Date: 20121107
  Receipt Date: 20121114
  Transmission Date: 20130627
  Serious: No
  Sender: FDA-Public Use
  Company Number: US-PFIZER INC-2012277521

PATIENT
  Age: 66 Year
  Sex: Male
  Weight: 90.7 kg

DRUGS (12)
  1. LYRICA [Suspect]
     Indication: NEUROPATHY
     Dosage: 75 mg, 2x/day
     Route: 048
     Dates: start: 201207, end: 20121029
  2. TRAZODONE [Concomitant]
     Indication: SLEEP PROBLEM
     Dosage: 50 mg, daily
  3. TRAMADOL [Concomitant]
     Dosage: 100 mg, 3x/day
  4. TAMSULOSIN [Concomitant]
     Dosage: 0.4 mg, daily
  5. SIMVASTATIN [Concomitant]
     Dosage: 20 mg, daily
  6. LOSARTAN [Concomitant]
     Dosage: 25 mg, daily
  7. FENOFIBRATE [Concomitant]
     Dosage: 134 mg, daily
  8. PROPRANOLOL [Concomitant]
     Dosage: 20 mg, 2x/day
  9. JANUVIA [Concomitant]
     Dosage: 50 mg, daily
  10. ACETYLSALICYLIC ACID [Concomitant]
     Dosage: 81 mg, daily
  11. CHONDROITIN/GLUCOSAMINE [Concomitant]
     Dosage: 2 DF, daily
     Route: 048
  12. VIAGRA [Concomitant]

REACTIONS (4)
  - Stress [Not Recovered/Not Resolved]
  - Pain [Not Recovered/Not Resolved]
  - Limb discomfort [Not Recovered/Not Resolved]
  - Drug ineffective [Unknown]
